FAERS Safety Report 7527475-3 (Version None)
Quarter: 2011Q2

REPORT INFORMATION
  Report Type: 
  Country: None (occurrence: None)
  Receive Date: 20110607
  Receipt Date: 20110530
  Transmission Date: 20111010
  Serious: Yes (Other)
  Sender: FDA-Public Use
  Company Number: ES-JNJFOC-20110601444

PATIENT
  Age: 54 Year
  Sex: Female

DRUGS (5)
  1. EVISTA [Interacting]
     Indication: OSTEOPOROSIS
     Route: 065
     Dates: start: 20100801
  2. CALCIUM CARBONATE [Interacting]
     Indication: OSTEOPOROSIS
     Route: 065
     Dates: start: 20100701
  3. SERTRALINE HYDROCHLORIDE [Suspect]
     Indication: OBSESSIVE-COMPULSIVE DISORDER
     Route: 065
     Dates: start: 20110101
  4. ITRACONAZOLE [Suspect]
     Indication: VULVOVAGINAL CANDIDIASIS
     Route: 065
     Dates: start: 20110201
  5. ANAFRANIL [Interacting]
     Indication: OBSESSIVE-COMPULSIVE DISORDER
     Route: 065
     Dates: start: 20110101

REACTIONS (2)
  - DIARRHOEA [None]
  - DRUG INTERACTION [None]
